FAERS Safety Report 7777962-8 (Version None)
Quarter: 2011Q3

REPORT INFORMATION
  Report Type: 
  Country: None (occurrence: None)
  Receive Date: 20110926
  Receipt Date: 20090313
  Transmission Date: 20111222
  Serious: No
  Sender: FDA-Public Use
  Company Number: 2009BI008369

PATIENT
  Sex: Female

DRUGS (1)
  1. TYSABRI [Suspect]
     Indication: MULTIPLE SCLEROSIS
     Route: 042
     Dates: start: 20080317, end: 20110519

REACTIONS (6)
  - MUSCULAR WEAKNESS [None]
  - GAIT DISTURBANCE [None]
  - SENSITIVITY OF TEETH [None]
  - INFLUENZA LIKE ILLNESS [None]
  - DEPRESSION [None]
  - STRESS [None]
